FAERS Safety Report 12780889 (Version 4)
Quarter: 2017Q1

REPORT INFORMATION
  Report Type: Spontaneous
  Country: US (occurrence: US)
  Receive Date: 20160926
  Receipt Date: 20170104
  Transmission Date: 20170428
  Serious: Yes (Hospitalization)
  Sender: FDA-Public Use
  Company Number: US-SA-2016SA171973

PATIENT
  Age: 67 Year
  Sex: Female
  Weight: 95.25 kg

DRUGS (9)
  1. METFORMIN [Concomitant]
     Active Substance: METFORMIN HYDROCHLORIDE
  2. LANTUS SOLOSTAR [Suspect]
     Active Substance: INSULIN GLARGINE
     Indication: DIABETES MELLITUS
     Dosage: DOSE:65 UNIT(S)
     Route: 065
  3. LANTUS SOLOSTAR [Suspect]
     Active Substance: INSULIN GLARGINE
     Indication: DIABETES MELLITUS
     Dosage: DOSE:54 UNIT(S)
     Route: 065
  4. SOLOSTAR [Concomitant]
     Active Substance: DEVICE
     Indication: DIABETES MELLITUS
  5. SOLOSTAR [Concomitant]
     Active Substance: DEVICE
     Indication: DIABETES MELLITUS
  6. SOLOSTAR [Concomitant]
     Active Substance: DEVICE
     Indication: DIABETES MELLITUS
  7. LANTUS SOLOSTAR [Suspect]
     Active Substance: INSULIN GLARGINE
     Indication: DIABETES MELLITUS
     Dosage: DOSE:63 UNIT(S)
     Route: 065
  8. LANTUS SOLOSTAR [Suspect]
     Active Substance: INSULIN GLARGINE
     Indication: DIABETES MELLITUS
     Dosage: DOSE:60 UNIT(S)
     Route: 065
  9. SOLOSTAR [Concomitant]
     Active Substance: DEVICE
     Indication: DIABETES MELLITUS

REACTIONS (3)
  - Arthropathy [Recovered/Resolved]
  - Visual acuity reduced [Unknown]
  - Blood glucose increased [Unknown]
